FAERS Safety Report 11222944 (Version 1)
Quarter: 2015Q2

REPORT INFORMATION
  Report Type: Spontaneous
  Country: US (occurrence: US)
  Receive Date: 20150626
  Receipt Date: 20150626
  Transmission Date: 20150821
  Serious: Yes (Hospitalization, Other)
  Sender: FDA-Public Use
  Company Number: US-ELI_LILLY_AND_COMPANY-US201506006606

PATIENT
  Age: 3 Year
  Sex: Female

DRUGS (1)
  1. HUMALOG [Suspect]
     Active Substance: INSULIN LISPRO
     Indication: DIABETES MELLITUS
     Dosage: UNK, PRN
     Route: 058

REACTIONS (9)
  - Food hoarding [Unknown]
  - Malaise [Unknown]
  - Blood ketone body [Unknown]
  - Blood glucose decreased [Unknown]
  - Drug dose omission [Unknown]
  - Blood glucose increased [Unknown]
  - Infusion site infection [Unknown]
  - Croup infectious [Unknown]
  - Blood glucose increased [Unknown]

NARRATIVE: CASE EVENT DATE: 20150615
